FAERS Safety Report 14518991 (Version 2)
Quarter: 2018Q2

REPORT INFORMATION
  Report Type: Spontaneous
  Country: US (occurrence: US)
  Receive Date: 20180212
  Receipt Date: 20180427
  Transmission Date: 20180711
  Serious: Yes (Other)
  Sender: FDA-Public Use
  Company Number: US-PFIZER INC-2018059681

PATIENT
  Sex: Female
  Weight: 52.16 kg

DRUGS (1)
  1. ESTRING [Suspect]
     Active Substance: ESTRADIOL
     Indication: OESTROGEN DEFICIENCY
     Dosage: UNK
     Dates: start: 2010

REACTIONS (11)
  - Impaired gastric emptying [Unknown]
  - Bladder disorder [Unknown]
  - Abdominal distension [Unknown]
  - Bradycardia [Unknown]
  - Hypertension [Unknown]
  - Oedema [Unknown]
  - Diabetes mellitus [Unknown]
  - Weight fluctuation [Unknown]
  - Cardiac failure congestive [Unknown]
  - Hypoacusis [Unknown]
  - Peripheral swelling [Unknown]
